FAERS Safety Report 7473671-3 (Version None)
Quarter: 2011Q2

REPORT INFORMATION
  Report Type: 
  Country: None (occurrence: None)
  Receive Date: 20110511
  Receipt Date: 20110503
  Transmission Date: 20111010
  Serious: Yes (Other)
  Sender: FDA-Public Use
  Company Number: US-PURDUE-USA-2011-0065590

PATIENT
  Age: 46 Year
  Sex: Female
  Weight: 43.9 kg

DRUGS (12)
  1. OXYCODONE HCL [Suspect]
     Indication: BACK PAIN
     Dosage: 20 MG, Q12H
  2. ATIVAN [Concomitant]
     Indication: POST-TRAUMATIC STRESS DISORDER
  3. GABAPENTIN [Concomitant]
     Indication: PRODUCT USED FOR UNKNOWN INDICATION
  4. CELEXA [Concomitant]
     Indication: POST-TRAUMATIC STRESS DISORDER
  5. NEXIUM [Concomitant]
     Indication: PRODUCT USED FOR UNKNOWN INDICATION
  6. BUTAL [Concomitant]
     Indication: PRODUCT USED FOR UNKNOWN INDICATION
  7. PROTONIX [Concomitant]
     Indication: PRODUCT USED FOR UNKNOWN INDICATION
  8. MELOXICAM [Concomitant]
     Indication: PRODUCT USED FOR UNKNOWN INDICATION
  9. FLEXERIL [Concomitant]
     Indication: PRODUCT USED FOR UNKNOWN INDICATION
  10. SKELAXIN [Concomitant]
     Indication: PRODUCT USED FOR UNKNOWN INDICATION
  11. ESTROGENIC SUBSTANCE [Concomitant]
     Indication: PRODUCT USED FOR UNKNOWN INDICATION
  12. PROSOM [Concomitant]
     Indication: POST-TRAUMATIC STRESS DISORDER

REACTIONS (6)
  - SUICIDAL IDEATION [None]
  - WRONG TECHNIQUE IN DRUG USAGE PROCESS [None]
  - COUGH [None]
  - MEDICATION RESIDUE [None]
  - BEDRIDDEN [None]
  - DRUG INEFFECTIVE [None]
